FAERS Safety Report 6305590-X (Version None)
Quarter: 2009Q3

REPORT INFORMATION
  Report Type: 
  Country: None (occurrence: None)
  Receive Date: 20090806
  Receipt Date: 20090714
  Transmission Date: 20100115
  Serious: Yes (Hospitalization)
  Sender: FDA-Public Use
  Company Number: 002313

PATIENT
  Age: 54 Year
  Sex: Male
  Weight: 78 kg

DRUGS (11)
  1. PEGATANIB SODIUM; PLACEBO (CODE NOT BROKEN) UNKNOWN [Suspect]
     Indication: DIABETIC RETINAL OEDEMA
     Dosage: 0.3 MG, EVERY 6 WEEKS
     Dates: start: 20071115
  2. NORVASC [Concomitant]
  3. SIMVASTATIN [Concomitant]
  4. AVAPRO [Concomitant]
  5. AVAPRO HCT (HYDROCHLOROTHIAZIDE, IRBESARTAN) [Concomitant]
  6. ASPIRIN [Concomitant]
  7. CALTRATE (CALCIUM CARBONATE) [Concomitant]
  8. FLORINEF [Concomitant]
  9. LANTUS [Concomitant]
  10. NOVOLOG [Concomitant]
  11. ANTIBIOTICS [Concomitant]

REACTIONS (2)
  - BLOOD GLUCOSE DECREASED [None]
  - VIRAL INFECTION [None]
